FAERS Safety Report 9434601 (Version 1)
Quarter: 2013Q3

REPORT INFORMATION
  Report Type: Spontaneous
  Country: US (occurrence: US)
  Receive Date: 20130801
  Receipt Date: 20130801
  Transmission Date: 20140515
  Serious: No
  Sender: FDA-Public Use
  Company Number: US-PFIZER INC-2013222291

PATIENT
  Age: 56 Year
  Sex: Female

DRUGS (6)
  1. DILANTIN [Suspect]
     Dosage: UNK
  2. CODEINE [Suspect]
     Dosage: UNK
  3. KEFLEX [Suspect]
     Dosage: UNK
  4. IMITREX [Suspect]
     Dosage: UNK
  5. IODINE [Suspect]
     Dosage: UNK
  6. PHENOBARBITAL [Suspect]
     Dosage: UNK

REACTIONS (1)
  - Drug hypersensitivity [Unknown]
